FAERS Safety Report 8951386 (Version 1)
Quarter: 2012Q4

REPORT INFORMATION
  Report Type: 
  Country: US (occurrence: US)
  Receive Date: 20121207
  Receipt Date: 20121207
  Transmission Date: 20130627
  Serious: Yes (Other)
  Sender: FDA-Public Use
  Company Number: US-JNJFOC-20110703739

PATIENT
  Age: 81 Year
  Sex: Male

DRUGS (1)
  1. LEVAQUIN [Suspect]
     Indication: RESPIRATORY TRACT INFECTION
     Route: 048

REACTIONS (5)
  - Rotator cuff syndrome [Unknown]
  - Rotator cuff syndrome [Unknown]
  - Tendon rupture [Unknown]
  - Tenosynovitis [Unknown]
  - Muscle atrophy [Unknown]
